FAERS Safety Report 4969316-4 (Version None)
Quarter: 2006Q2

REPORT INFORMATION
  Report Type: 
  Country: None (occurrence: None)
  Receive Date: 20060411
  Receipt Date: 20051116
  Transmission Date: 20061013
  Serious: Yes (Hospitalization)
  Sender: FDA-Public Use
  Company Number: IT-BRISTOL-MYERS SQUIBB COMPANY-13183801

PATIENT
  Age: 35 Year
  Sex: Female

DRUGS (5)
  1. REYATAZ [Suspect]
     Indication: HIV INFECTION
     Route: 048
     Dates: start: 20050623
  2. NORVIR [Suspect]
     Route: 048
     Dates: start: 20050623, end: 20050722
  3. VIREAD [Suspect]
     Route: 048
     Dates: start: 20050623, end: 20050722
  4. EMTRIVA [Suspect]
     Indication: HIV INFECTION
     Route: 048
     Dates: start: 20050623, end: 20050722
  5. FLUCONAZOLE [Concomitant]

REACTIONS (1)
  - CUSHINGOID [None]
